FAERS Safety Report 24855088 (Version 3)
Quarter: 2025Q1

REPORT INFORMATION
  Report Type: Report from Study
  Country: US (occurrence: US)
  Receive Date: 20250117
  Receipt Date: 20250204
  Transmission Date: 20250408
  Serious: Yes (Hospitalization, Other)
  Sender: MERCK
  Company Number: US-009507513-2501USA003993

PATIENT
  Age: 70 Year
  Sex: Female
  Weight: 60.771 kg

DRUGS (15)
  1. SOTATERCEPT [Suspect]
     Active Substance: SOTATERCEPT
     Indication: Pulmonary arterial hypertension
     Dosage: 0.8 MILLILITER, Q3W, STRENGTH 45 MG
     Route: 058
     Dates: start: 2024, end: 202501
  2. REMODULIN [Suspect]
     Active Substance: TREPROSTINIL
     Indication: Pulmonary arterial hypertension
     Route: 058
  3. REMODULIN [Suspect]
     Active Substance: TREPROSTINIL
     Route: 058
     Dates: start: 20241206
  4. PEPCID AC [Concomitant]
     Active Substance: FAMOTIDINE
  5. CYMBALTA [Concomitant]
     Active Substance: DULOXETINE HYDROCHLORIDE
  6. PREDNISONE [Concomitant]
     Active Substance: PREDNISONE
  7. TYLENOL EXTRA STRENGTH [Concomitant]
     Active Substance: ACETAMINOPHEN
  8. SODIUM CHLORIDE [Concomitant]
     Active Substance: SODIUM CHLORIDE
  9. PANTOPRAZOLE SODIUM [Concomitant]
     Active Substance: PANTOPRAZOLE SODIUM
  10. TADALAFIL [Concomitant]
     Active Substance: TADALAFIL
  11. XANAX [Concomitant]
     Active Substance: ALPRAZOLAM
  12. OXYGEN [Concomitant]
     Active Substance: OXYGEN
  13. AMBRISENTAN [Concomitant]
     Active Substance: AMBRISENTAN
  14. LOPERAMIDE [Concomitant]
     Active Substance: LOPERAMIDE
  15. CLARITIN [Concomitant]
     Active Substance: LORATADINE

REACTIONS (4)
  - Rectal haemorrhage [Unknown]
  - Gastrointestinal haemorrhage [Unknown]
  - Nasal congestion [Unknown]
  - Epistaxis [Unknown]

NARRATIVE: CASE EVENT DATE: 20250101
